FAERS Safety Report 9515513 (Version 1)
Quarter: 2013Q1

REPORT INFORMATION
  Report Type: Spontaneous
  Country: US (occurrence: None)
  Receive Date: 20130305
  Receipt Date: 20130305
  Transmission Date: 20140127
  Serious: Yes (Hospitalization, Other)
  Sender: FDA-Public Use
  Company Number: 163-21880-12020290

PATIENT
  Age: 65 Year
  Sex: Male

DRUGS (23)
  1. REVLIMID [Suspect]
     Indication: PLASMA CELL MYELOMA
     Route: 048
     Dates: start: 20111207
  2. BABY ASPIRIN(ACETYLSALICYLIC ACID) [Concomitant]
  3. DEXAMETHASONE [Concomitant]
  4. TRICOR(FENOFIBRATE) [Concomitant]
  5. DIOVAN HCT(CODIOVAN) [Concomitant]
  6. LANTUS (INSULIN GLARGINE) [Concomitant]
  7. MUPIROCIN(MUPIROCIN) [Concomitant]
  8. LORAZEPAM(LORAZEPAM) [Concomitant]
  9. GLYBURIDE-METFORMIN [Concomitant]
  10. AZITHROMYCIN(AZITHROMYCIN) [Concomitant]
  11. PRAVASTATIN (PRAVASTATIN) [Concomitant]
  12. PROMETHAZINE(PROMETHAZINE) [Concomitant]
  13. ISOSORBIDE(ISOSORBIDE) [Concomitant]
  14. LOVAZA(OMEGA-3 MARINE TRIGLYCERIDES) [Concomitant]
  15. CLONIDINE(CLONIDINE) [Concomitant]
  16. SPIRONOLACTONE(SPIRONOLACTONE) [Concomitant]
  17. METOPROLOL(METOPROLOL) [Concomitant]
  18. DILTIAZEM(DILTIAZEM) [Concomitant]
  19. OMEPRAZOLE(OMEPRAZOLE) [Concomitant]
  20. PERCOCET(OXYCOCET) [Concomitant]
  21. ENOXAPARIN(ENOXAPARIN) [Concomitant]
  22. MIRALAZ(MACROGOL) [Concomitant]
  23. PLAVIX(CLOPIDOGREL SULFATE) [Concomitant]

REACTIONS (7)
  - Pulmonary thrombosis [None]
  - Drug intolerance [None]
  - Dyspnoea [None]
  - Fatigue [None]
  - Diarrhoea [None]
  - Flatulence [None]
  - Oedema peripheral [None]
